FAERS Safety Report 4976722-0 (Version None)
Quarter: 2006Q2

REPORT INFORMATION
  Report Type: 
  Country: None (occurrence: None)
  Receive Date: 20060419
  Receipt Date: 20051130
  Transmission Date: 20061013
  Serious: Yes (Hospitalization)
  Sender: FDA-Public Use
  Company Number: US-MERCK-0512USA00032

PATIENT
  Age: 53 Year
  Sex: Male
  Weight: 107 kg

DRUGS (1)
  1. VIOXX [Suspect]
     Indication: ARTHRITIS
     Route: 048
     Dates: start: 20010124, end: 20040124

REACTIONS (22)
  - ACUTE MYOCARDIAL INFARCTION [None]
  - AKINESIA [None]
  - ATRIAL FIBRILLATION [None]
  - CARDIAC ARREST [None]
  - CHEST PAIN [None]
  - CORONARY ARTERY DISEASE [None]
  - CORONARY ARTERY OCCLUSION [None]
  - CORONARY ARTERY STENOSIS [None]
  - DILATATION ATRIAL [None]
  - DISTURBANCE IN SEXUAL AROUSAL [None]
  - EXPOSURE TO TOXIC AGENT [None]
  - HEADACHE [None]
  - HERPES ZOSTER [None]
  - HYPERTENSION [None]
  - MIGRAINE [None]
  - MITRAL VALVE INCOMPETENCE [None]
  - SHOULDER OPERATION [None]
  - TENDONITIS [None]
  - TRICUSPID VALVE INCOMPETENCE [None]
  - VENTRICULAR DYSKINESIA [None]
  - VENTRICULAR FIBRILLATION [None]
  - VENTRICULAR HYPOKINESIA [None]
